FAERS Safety Report 7890420-5 (Version None)
Quarter: 2011Q4

REPORT INFORMATION
  Report Type: 
  Country: None (occurrence: None)
  Receive Date: 20111103
  Receipt Date: 20110721
  Transmission Date: 20120403
  Serious: No
  Sender: FDA-Public Use
  Company Number: US-AMGEN-KDL365741

PATIENT
  Age: 55 Year
  Sex: Female
  Weight: 55.4 kg

DRUGS (7)
  1. MELOXICAM [Concomitant]
     Dosage: 15 MG, UNK
     Dates: start: 20081201
  2. IBANDRONATE SODIUM [Concomitant]
     Dosage: 150 MG, UNK
     Dates: start: 20050101
  3. ENBREL [Suspect]
     Indication: RHEUMATOID ARTHRITIS
     Dosage: 50 MG, QWK
     Route: 058
     Dates: start: 20090201, end: 20090920
  4. FOLIC ACID [Concomitant]
     Dosage: UNK UNK, UNK
     Dates: start: 20040101
  5. EZETIMIBE [Concomitant]
     Dosage: UNK UNK, UNK
     Dates: start: 20090701
  6. DEXTROPROPOXYPHENE NAPSILATE W/ ACETAMINOPHEN [Concomitant]
     Dosage: UNK UNK, UNK
     Dates: start: 20060101
  7. ACETAMINOPHEN [Concomitant]
     Dosage: UNK UNK, PRN
     Dates: start: 20080101

REACTIONS (15)
  - INJECTION SITE ERYTHEMA [None]
  - INJECTION SITE SWELLING [None]
  - INJECTION SITE HAEMATOMA [None]
  - RHEUMATOID ARTHRITIS [None]
  - DYSPEPSIA [None]
  - FATIGUE [None]
  - INJECTION SITE REACTION [None]
  - CHEST PAIN [None]
  - CONTUSION [None]
  - LIP SWELLING [None]
  - RASH PAPULAR [None]
  - INJECTION SITE PRURITUS [None]
  - RASH PRURITIC [None]
  - EYE SWELLING [None]
  - DERMATITIS ALLERGIC [None]
